FAERS Safety Report 7184722-8 (Version None)
Quarter: 2010Q4

REPORT INFORMATION
  Report Type: 
  Country: None (occurrence: None)
  Receive Date: 20101222
  Receipt Date: 20100525
  Transmission Date: 20110411
  Serious: Yes (Other)
  Sender: FDA-Public Use
  Company Number: US-AMGEN-QUU414279

PATIENT

DRUGS (3)
  1. ENBREL [Suspect]
     Indication: RHEUMATOID ARTHRITIS
     Dosage: 50 MG, QWK
     Dates: start: 20100401
  2. UNSPECIFIED MEDICATION [Concomitant]
     Dosage: UNK UNK, UNK
  3. NSAID [Concomitant]
     Dosage: UNK UNK, UNK

REACTIONS (2)
  - ASTHENIA [None]
  - INCORRECT STORAGE OF DRUG [None]
